FAERS Safety Report 8170457-1 (Version None)
Quarter: 2012Q1

REPORT INFORMATION
  Report Type: 
  Country: None (occurrence: None)
  Receive Date: 20120104
  Receipt Date: 20111115
  Transmission Date: 20120608
  Serious: No
  Sender: FDA-Public Use
  Company Number: 2011HGS-002807

PATIENT
  Age: 49 Year
  Sex: Female
  Weight: 96.6162 kg

DRUGS (6)
  1. PRILOSEC (OMEPRAZOLE) (OMEPRAZOLE) [Concomitant]
  2. BENLYSTA [Suspect]
     Indication: SYSTEMIC LUPUS ERYTHEMATOSUS
     Dosage: 1 IN 28 D, INTRAVENOUS DRIP
     Route: 041
     Dates: start: 20110920
  3. SYNTHROID(LEVOTHYROXINE SODIUM)(LEVOTHYROXINE SODIUM) [Concomitant]
  4. WELLBUTRIN XL(BUPROPION HYDROCHLORIDE) (BUPROPION HYDROCHLORIDE) [Concomitant]
  5. CELEXA [Concomitant]
  6. VITAMIN D (ERGOCALCIFEROL) (ERGOCALCIFEROL) [Concomitant]

REACTIONS (1)
  - HEADACHE [None]
